FAERS Safety Report 11211642 (Version 1)
Quarter: 2015Q2

REPORT INFORMATION
  Report Type: Spontaneous
  Country: ES (occurrence: ES)
  Receive Date: 20150623
  Receipt Date: 20150623
  Transmission Date: 20150821
  Serious: Yes (Disabling, Other)
  Sender: FDA-Public Use
  Company Number: ES-ACTAVIS-2015-12101

PATIENT
  Age: 68 Year
  Sex: Female

DRUGS (12)
  1. VITAMIN B12 [Concomitant]
     Active Substance: CYANOCOBALAMIN
     Indication: ANAEMIA VITAMIN B12 DEFICIENCY
     Dosage: UNK
     Route: 065
  2. BRINZOLAMIDE [Concomitant]
     Active Substance: BRINZOLAMIDE
     Indication: PRODUCT USED FOR UNKNOWN INDICATION
     Dosage: UNK
     Route: 047
  3. INSULIN GLARGINE [Concomitant]
     Active Substance: INSULIN GLARGINE
     Indication: TYPE 2 DIABETES MELLITUS
     Dosage: UNK
     Route: 065
  4. QUETIAPINE (UNKNOWN) [Suspect]
     Active Substance: QUETIAPINE
     Indication: SCHIZOPHRENIA, PARANOID TYPE
     Dosage: UNK
     Route: 065
  5. TIMOLOL [Concomitant]
     Active Substance: TIMOLOL
     Indication: PRODUCT USED FOR UNKNOWN INDICATION
     Dosage: UNK
     Route: 047
  6. PRAVASTATIN [Concomitant]
     Active Substance: PRAVASTATIN\PRAVASTATIN SODIUM
     Indication: HYPERLIPIDAEMIA
     Dosage: UNK
     Route: 065
  7. ALPRAZOLAM (UNKNOWN) [Suspect]
     Active Substance: ALPRAZOLAM
     Indication: SCHIZOPHRENIA, PARANOID TYPE
     Dosage: UNK
     Route: 065
  8. CLOPIXOL                           /00876702/ [Interacting]
     Active Substance: ZUCLOPENTHIXOL ACETATE
     Indication: SCHIZOPHRENIA, PARANOID TYPE
     Dosage: 200 MG, UNKNOWN/14 DAYS
     Route: 030
  9. ENALAPRIL + HIDROCLOROTIAZIDA [Concomitant]
     Indication: HYPERTENSION
     Dosage: UNK
     Route: 065
  10. LETROZOLE (UNKNOWN) [Interacting]
     Active Substance: LETROZOLE
     Indication: BREAST CANCER
     Dosage: UNK
     Route: 065
  11. METFORMIN [Concomitant]
     Active Substance: METFORMIN HYDROCHLORIDE
     Indication: TYPE 2 DIABETES MELLITUS
     Dosage: UNK
     Route: 065
  12. PARACETAMOL [Concomitant]
     Active Substance: ACETAMINOPHEN
     Indication: PRODUCT USED FOR UNKNOWN INDICATION
     Dosage: UNK
     Route: 065

REACTIONS (6)
  - Sedation [Unknown]
  - Salivary hypersecretion [Recovering/Resolving]
  - Drug interaction [Recovered/Resolved]
  - Lethargy [Recovering/Resolving]
  - Extrapyramidal disorder [Recovered/Resolved]
  - Dysphagia [Unknown]
